FAERS Safety Report 9935290 (Version 1)
Quarter: 2014Q1

REPORT INFORMATION
  Report Type: Spontaneous
  Country: DE (occurrence: DE)
  Receive Date: 20140228
  Receipt Date: 20140228
  Transmission Date: 20141002
  Serious: Yes (Other)
  Sender: FDA-Public Use
  Company Number: DE-UCBSA-113719

PATIENT
  Age: 30 Year
  Sex: Male
  Weight: 80 kg

DRUGS (6)
  1. VIMPAT [Suspect]
     Dosage: EVENING DOSAGE (600 MG) WAS TAKEN TWICE BY MISTAKE
     Route: 048
     Dates: start: 20140216
  2. VIMPAT [Suspect]
     Dosage: 6 TABLETS PER DAY
     Route: 048
     Dates: start: 2014, end: 2014
  3. VIMPAT [Suspect]
     Route: 048
  4. KEPPRA [Suspect]
     Dosage: 5 TABLETS PER DAY
     Route: 048
     Dates: start: 20140216
  5. LAMOTRIGINE [Suspect]
     Dosage: 2 TABLETS PER DAY
     Route: 048
     Dates: start: 20140216
  6. ZONEGRAN [Suspect]
     Dosage: 3 TABLETS PER DAY
     Route: 048
     Dates: start: 20140216

REACTIONS (6)
  - Overdose [Unknown]
  - Accidental overdose [Unknown]
  - Poisoning [Unknown]
  - Vomiting [Unknown]
  - Dizziness [Unknown]
  - Confusional state [Unknown]
